FAERS Safety Report 9319336 (Version 1)
Quarter: 2013Q2

REPORT INFORMATION
  Report Type: Spontaneous
  Country: JP (occurrence: JP)
  Receive Date: 20130530
  Receipt Date: 20130530
  Transmission Date: 20140414
  Serious: Yes (Hospitalization, Other)
  Sender: FDA-Public Use
  Company Number: PHHY2013JP053514

PATIENT
  Sex: Female

DRUGS (1)
  1. ZOMETA [Suspect]
     Indication: RENAL CELL CARCINOMA
     Dosage: UNK
     Route: 041
     Dates: start: 20111117

REACTIONS (3)
  - Metastases to pancreas [Unknown]
  - Haematemesis [Unknown]
  - Small intestine carcinoma metastatic [Unknown]
